FAERS Safety Report 4673284-2 (Version None)
Quarter: 2005Q2

REPORT INFORMATION
  Report Type: 
  Country: None (occurrence: None)
  Receive Date: 20050523
  Receipt Date: 20050523
  Transmission Date: 20051028
  Serious: Yes (Hospitalization)
  Sender: FDA-Public Use
  Company Number: None

PATIENT
  Age: 41 Year
  Sex: Female
  Weight: 78.9259 kg

DRUGS (8)
  1. BUPROPION HCL [Suspect]
     Indication: SMOKING CESSATION THERAPY
     Dosage: 150MG  PO BID
     Route: 048
     Dates: start: 20050520, end: 20050521
  2. ROCEPHIN [Concomitant]
  3. PREDNISONE TAB [Concomitant]
  4. ZITHROMAX [Concomitant]
  5. LOVENOX [Concomitant]
  6. NICOTINE [Concomitant]
  7. COMBIVENT [Concomitant]
  8. INSULIN [Concomitant]

REACTIONS (1)
  - PALPITATIONS [None]
